FAERS Safety Report 4421921-X (Version None)
Quarter: 2004Q3

REPORT INFORMATION
  Report Type: 
  Country: None (occurrence: None)
  Receive Date: 20040805
  Receipt Date: 20040727
  Transmission Date: 20050211
  Serious: Yes (Death)
  Sender: FDA-Public Use
  Company Number: 163-20785-04030331

PATIENT
  Age: 67 Year
  Sex: Male

DRUGS (1)
  1. THALOMID [Suspect]
     Indication: MYELOFIBROSIS
     Dosage: 50 MG, QD, ORAL
     Route: 048
     Dates: start: 20031209, end: 20040217

REACTIONS (4)
  - DISEASE PROGRESSION [None]
  - MYELOFIBROSIS [None]
  - SUBDURAL HAEMATOMA [None]
  - THERAPY NON-RESPONDER [None]
